FAERS Safety Report 21412827 (Version 1)
Quarter: 2022Q4

REPORT INFORMATION
  Report Type: Spontaneous
  Country: US (occurrence: US)
  Receive Date: 20221005
  Receipt Date: 20221005
  Transmission Date: 20230112
  Serious: No
  Sender: FDA-Public Use
  Company Number: US-ELI_LILLY_AND_COMPANY-US202209006534

PATIENT
  Age: 62 Year
  Sex: Female

DRUGS (1)
  1. BEBTELOVIMAB [Suspect]
     Active Substance: BEBTELOVIMAB
     Indication: Product used for unknown indication
     Dosage: 175 MG, SINGLE
     Route: 065
     Dates: start: 20220911, end: 20220911

REACTIONS (4)
  - Illness [Unknown]
  - Cough [Unknown]
  - Malaise [Unknown]
  - Drug ineffective [Unknown]
